FAERS Safety Report 4994445-9 (Version None)
Quarter: 2006Q2

REPORT INFORMATION
  Report Type: 
  Country: None (occurrence: None)
  Receive Date: 20060503
  Receipt Date: 20060425
  Transmission Date: 20061013
  Serious: Yes (Hospitalization)
  Sender: FDA-Public Use
  Company Number: 2006054773

PATIENT
  Age: 85 Year
  Sex: Male

DRUGS (9)
  1. QUINAPRIL HCL [Suspect]
     Indication: HYPERTENSION
     Dosage: 10 MG (10 MG, QD), ORAL
     Route: 048
  2. ASPIRIN [Concomitant]
  3. PENTOXIFYLLINE [Concomitant]
  4. METOPROLOL SUCCINATE [Concomitant]
  5. AMLODIPINE [Concomitant]
  6. HYDROCHLOROTHIAZIDE [Concomitant]
  7. RILMENIDINE (RILMENIDINE) [Concomitant]
  8. SELEGILINE (SELEGILINE) [Concomitant]
  9. ATORVASTATIN CALCIUM [Concomitant]

REACTIONS (4)
  - CAROTID ARTERY STENOSIS [None]
  - DYSARTHRIA [None]
  - HYPERTENSION [None]
  - MONOPARESIS [None]
